FAERS Safety Report 10052827 (Version 1)
Quarter: 2014Q2

REPORT INFORMATION
  Report Type: Spontaneous
  Country: US (occurrence: US)
  Receive Date: 20140402
  Receipt Date: 20140402
  Transmission Date: 20141212
  Serious: No
  Sender: FDA-Public Use
  Company Number: US-BAXTER-2014BAX014939

PATIENT
  Age: 56 Year
  Sex: Male

DRUGS (1)
  1. DIANEAL PD2 [Suspect]
     Indication: PERITONEAL DIALYSIS
     Dates: start: 20130905

REACTIONS (2)
  - Wound [Unknown]
  - Post procedural complication [Unknown]
